FAERS Safety Report 7457669-7 (Version None)
Quarter: 2011Q2

REPORT INFORMATION
  Report Type: 
  Country: None (occurrence: None)
  Receive Date: 20110504
  Receipt Date: 20110427
  Transmission Date: 20111010
  Serious: Yes (Hospitalization, Other)
  Sender: FDA-Public Use
  Company Number: US-ROCHE-743299

PATIENT
  Sex: Female
  Weight: 53.5 kg

DRUGS (1)
  1. ACCUTANE [Suspect]
     Indication: ACNE
     Dosage: SIX MONTHS
     Route: 065
     Dates: start: 19840101, end: 19840601

REACTIONS (7)
  - INFLAMMATORY BOWEL DISEASE [None]
  - COLITIS ULCERATIVE [None]
  - INTESTINAL OBSTRUCTION [None]
  - GASTROINTESTINAL INJURY [None]
  - DIVERTICULITIS [None]
  - CROHN'S DISEASE [None]
  - IRRITABLE BOWEL SYNDROME [None]
